FAERS Safety Report 19173972 (Version 2)
Quarter: 2021Q2

REPORT INFORMATION
  Report Type: Spontaneous
  Country: MA (occurrence: ER)
  Receive Date: 20210423
  Receipt Date: 20210506
  Transmission Date: 20210717
  Serious: Yes (Hospitalization, Other)
  Sender: FDA-Public Use
  Company Number: ER-ASSERTIO THERAPEUTICS, INC.-ER-2021AST000057

PATIENT
  Age: 50 Year
  Sex: Male

DRUGS (1)
  1. DICLOFENAC [Suspect]
     Active Substance: DICLOFENAC
     Indication: PRODUCT USED FOR UNKNOWN INDICATION
     Dosage: 200 MG, UNK
     Route: 048

REACTIONS (5)
  - Rhabdomyolysis [Recovered/Resolved]
  - Acute respiratory distress syndrome [None]
  - Oropharyngeal oedema [Recovered/Resolved]
  - Face oedema [Recovered/Resolved]
  - Swollen tongue [Recovered/Resolved]
